FAERS Safety Report 10567086 (Version 8)
Quarter: 2015Q4

REPORT INFORMATION
  Report Type: Report from Study
  Country: DE (occurrence: KR)
  Receive Date: 20141105
  Receipt Date: 20151020
  Transmission Date: 20160304
  Serious: Yes (Other)
  Sender: FDA-Public Use
  Company Number: DE-ACTELION-A-US2014-107736

PATIENT
  Age: 59 Year
  Sex: Female

DRUGS (4)
  1. WARFARIN [Concomitant]
     Active Substance: WARFARIN
  2. OXYGEN. [Concomitant]
     Active Substance: OXYGEN
     Dosage: UNK
     Dates: start: 2013
  3. VENTAVIS [Suspect]
     Active Substance: ILOPROST
     Indication: PULMONARY ARTERIAL HYPERTENSION
     Dosage: 6 ML, 6LD
     Route: 055
     Dates: start: 20141022
  4. TRACLEER [Concomitant]
     Active Substance: BOSENTAN
     Indication: PULMONARY ARTERIAL HYPERTENSION

REACTIONS (17)
  - Drug ineffective [Not Recovered/Not Resolved]
  - Oxygen saturation decreased [Unknown]
  - Pain in jaw [Not Recovered/Not Resolved]
  - Oropharyngeal pain [Unknown]
  - Oral discomfort [Unknown]
  - Discomfort [Unknown]
  - Dyspnoea [Not Recovered/Not Resolved]
  - Nasopharyngitis [Not Recovered/Not Resolved]
  - Palpitations [Unknown]
  - Poor quality sleep [Unknown]
  - Decreased appetite [Unknown]
  - Choking [Recovering/Resolving]
  - Gingival disorder [Not Recovered/Not Resolved]
  - Tooth disorder [Not Recovered/Not Resolved]
  - Sputum increased [Unknown]
  - Headache [Unknown]
  - Gingival pain [Unknown]

NARRATIVE: CASE EVENT DATE: 2014
